FAERS Safety Report 5701338-8 (Version None)
Quarter: 2008Q2

REPORT INFORMATION
  Report Type: 
  Country: None (occurrence: None)
  Receive Date: 20080410
  Receipt Date: 20080331
  Transmission Date: 20081010
  Serious: Yes (Other)
  Sender: FDA-Public Use
  Company Number: CA-PFIZER INC-2008030835

PATIENT
  Sex: Female

DRUGS (1)
  1. ATORVASTATIN [Suspect]

REACTIONS (1)
  - ABORTION SPONTANEOUS [None]
